FAERS Safety Report 7119555-1 (Version None)
Quarter: 2010Q4

REPORT INFORMATION
  Report Type: 
  Country: None (occurrence: None)
  Receive Date: 20101123
  Receipt Date: 20101110
  Transmission Date: 20110411
  Serious: Yes (Other)
  Sender: FDA-Public Use
  Company Number: PHHY2010JP68193

PATIENT
  Age: 65 Year
  Sex: Male

DRUGS (2)
  1. GLEEVEC [Suspect]
     Indication: GASTROINTESTINAL STROMAL TUMOUR
     Dosage: 400 MG, DAILY
     Route: 048
     Dates: start: 20080501, end: 20081120
  2. GLEEVEC [Suspect]
     Dosage: 400 MG, DAILY
     Dates: start: 20090115

REACTIONS (4)
  - GASTRECTOMY [None]
  - LESION EXCISION [None]
  - PAIN [None]
  - RASH GENERALISED [None]
